FAERS Safety Report 5815994-7 (Version None)
Quarter: 2008Q3

REPORT INFORMATION
  Report Type: 
  Country: None (occurrence: None)
  Receive Date: 20080721
  Receipt Date: 20080710
  Transmission Date: 20090109
  Serious: Yes (Hospitalization, Other)
  Sender: FDA-Public Use
  Company Number: PHHY2008DE13043

PATIENT
  Sex: Female

DRUGS (2)
  1. RITALIN LA [Suspect]
     Indication: DEPRESSION
     Dosage: 30 MG/DAY
     Route: 048
     Dates: start: 20070101
  2. CIPRALEX [Concomitant]
     Indication: DEPRESSION
     Dosage: 10 MG/DAY
     Route: 048
     Dates: start: 20050101

REACTIONS (8)
  - ARTHRITIS [None]
  - INFLAMMATION [None]
  - LIVEDO RETICULARIS [None]
  - NUCLEAR MAGNETIC RESONANCE IMAGING ABNORMAL [None]
  - OEDEMA PERIPHERAL [None]
  - PAIN IN EXTREMITY [None]
  - PHOTOSENSITIVITY REACTION [None]
  - VASCULITIS [None]
